FAERS Safety Report 24032398 (Version 1)
Quarter: 2024Q3

REPORT INFORMATION
  Report Type: Report from Study
  Country: US (occurrence: US)
  Receive Date: 20240701
  Receipt Date: 20240701
  Transmission Date: 20241017
  Serious: Yes (Death)
  Sender: ABBVIE
  Company Number: US-ABBVIE-5820916

PATIENT
  Age: 45 Year
  Weight: 39 kg

DRUGS (1)
  1. LINZESS [Suspect]
     Active Substance: LINACLOTIDE
     Indication: Irritable bowel syndrome
     Dosage: FORM STRENGTH; 290MCG CAPSULE
     Route: 048

REACTIONS (3)
  - Impaired gastric emptying [Fatal]
  - Superior mesenteric artery syndrome [Fatal]
  - Pancreatitis relapsing [Fatal]

NARRATIVE: CASE EVENT DATE: 20240522
